FAERS Safety Report 16863478 (Version 1)
Quarter: 2019Q3

REPORT INFORMATION
  Report Type: Spontaneous
  Country: JP (occurrence: JP)
  Receive Date: 20190927
  Receipt Date: 20190927
  Transmission Date: 20191005
  Serious: Yes (Other)
  Sender: FDA-Public Use
  Company Number: JP-PURDUE PHARMA-GBR-2019-0071055

PATIENT
  Age: 36 Year
  Sex: Female

DRUGS (6)
  1. OXIFAST [Suspect]
     Active Substance: OXYCODONE
     Dosage: 12 MG, Q1H
     Route: 042
  2. ROPION [Concomitant]
     Active Substance: FLURBIPROFEN AXETIL
     Indication: CANCER PAIN
  3. OXIFAST [Suspect]
     Active Substance: OXYCODONE
     Indication: CANCER PAIN
     Dosage: 15 MG, Q1H
     Route: 042
  4. OXIFAST [Suspect]
     Active Substance: OXYCODONE
     Dosage: 9 MG, Q1H
     Route: 042
  5. MIDAZOLAM [Concomitant]
     Active Substance: MIDAZOLAM HYDROCHLORIDE
     Indication: INSOMNIA
     Dosage: 1.5 MG, DAILY
     Route: 042
  6. ACETAMINOPHEN. [Concomitant]
     Active Substance: ACETAMINOPHEN
     Indication: CANCER PAIN

REACTIONS (5)
  - Pyrexia [Not Recovered/Not Resolved]
  - Bacteraemia [Unknown]
  - Depressed level of consciousness [Unknown]
  - Monoplegia [Unknown]
  - Dyspnoea [Unknown]
